FAERS Safety Report 7560317-9 (Version None)
Quarter: 2011Q2

REPORT INFORMATION
  Report Type: 
  Country: None (occurrence: None)
  Receive Date: 20110621
  Receipt Date: 20110613
  Transmission Date: 20111010
  Serious: Yes (Life-Threatening, Hospitalization, Other)
  Sender: FDA-Public Use
  Company Number: JP-CELGENEUS-087-21880-11011577

PATIENT
  Sex: Female

DRUGS (33)
  1. REVLIMID [Suspect]
     Dosage: 10 MILLIGRAM
     Route: 048
     Dates: start: 20101027, end: 20101103
  2. REVLIMID [Suspect]
     Dosage: 10 MILLIGRAM
     Route: 048
     Dates: start: 20101210, end: 20101229
  3. REVLIMID [Suspect]
     Dosage: 5 MILLIGRAM
     Route: 048
     Dates: start: 20110120, end: 20110122
  4. DEXAMETHASONE [Suspect]
     Dosage: 16 MILLIGRAM
     Route: 048
     Dates: start: 20101201, end: 20101229
  5. BETAMETHASONE [Concomitant]
     Dosage: .5 MILLIGRAM
     Route: 048
     Dates: start: 20110120, end: 20110125
  6. ENSURE LIQUID [Concomitant]
     Indication: MULTIPLE MYELOMA
     Dosage: 250 MILLILITER
     Route: 048
     Dates: start: 20101016
  7. PROCHLORPERAZINE [Concomitant]
     Dosage: 15 MILLIGRAM
     Route: 048
     Dates: start: 20101016
  8. REVLIMID [Suspect]
     Dosage: 10 MILLIGRAM
     Route: 048
     Dates: start: 20101113, end: 20101202
  9. BETAMETHASONE [Concomitant]
     Indication: MULTIPLE MYELOMA
     Dosage: .5 MILLIGRAM
     Route: 048
     Dates: start: 20101016
  10. ACETAMINOPHEN [Concomitant]
     Dosage: 1800 MILLIGRAM
     Route: 048
     Dates: start: 20110119, end: 20110124
  11. MUCOSTA [Concomitant]
     Indication: PROPHYLAXIS
     Dosage: 300 MILLIGRAM
     Route: 048
     Dates: start: 20101016
  12. REBAMIPIDE [Concomitant]
     Indication: MULTIPLE MYELOMA
     Dosage: 300 MILLIGRAM
     Route: 048
     Dates: start: 20110119, end: 20110124
  13. MECOBALAMIN [Concomitant]
     Indication: MULTIPLE MYELOMA
     Dosage: 1500 MICROGRAM
     Route: 048
     Dates: start: 20110119, end: 20110124
  14. MAGNESIUM SULFATE [Concomitant]
     Indication: PROPHYLAXIS
     Dosage: 1980 MILLIGRAM
     Route: 048
     Dates: start: 20110119, end: 20110124
  15. REVLIMID [Suspect]
     Dosage: 5 MILLIGRAM
     Route: 048
     Dates: start: 20110124, end: 20110124
  16. VALTREX [Concomitant]
     Indication: MULTIPLE MYELOMA
     Dosage: 500 MILLIGRAM
     Route: 048
     Dates: start: 20101016
  17. CEPHARANTHIN [Concomitant]
     Indication: MULTIPLE MYELOMA
     Dosage: 30 MILLIGRAM
     Route: 048
     Dates: start: 20101016
  18. METHYCOBAL [Concomitant]
     Indication: MULTIPLE MYELOMA
     Dosage: 500 MILLIGRAM
     Route: 048
     Dates: start: 20101016
  19. ACETAMINOPHEN [Concomitant]
     Indication: MULTIPLE MYELOMA
     Dosage: 300 MILLIGRAM
     Route: 048
     Dates: start: 20101016
  20. AMITRIPTYLINE HCL [Concomitant]
     Indication: MULTIPLE MYELOMA
     Dosage: 37.5 MILLIGRAM
     Route: 048
     Dates: start: 20110119, end: 20110124
  21. REVLIMID [Suspect]
     Dosage: 10 MILLIGRAM
     Route: 048
     Dates: start: 20101022, end: 20101024
  22. DEXAMETHASONE [Suspect]
     Indication: MULTIPLE MYELOMA
     Dosage: 4 MILLIGRAM
     Route: 048
     Dates: start: 20101119, end: 20101119
  23. FUNGIZONE [Concomitant]
     Indication: MULTIPLE MYELOMA
     Dosage: 8 MILLICURIES
     Route: 048
     Dates: start: 20101016
  24. ETIZOLAM [Concomitant]
     Route: 048
     Dates: start: 20101016
  25. GABAPENTIN [Concomitant]
     Indication: PROPHYLAXIS
     Dosage: 600 MILLIGRAM
     Route: 048
     Dates: start: 20110119, end: 20110124
  26. PROTECADIN [Concomitant]
     Indication: PROPHYLAXIS
     Dosage: 10 MILLIGRAM
     Route: 048
     Dates: start: 20101016
  27. DEXAMETHASONE [Suspect]
     Dosage: 4 MILLIGRAM
     Route: 048
     Dates: start: 20101126, end: 20101126
  28. FENTANYL-100 [Concomitant]
     Route: 061
     Dates: start: 20101201
  29. FENTANYL [Concomitant]
     Dosage: 16.8 MILLIGRAM
     Route: 062
     Dates: start: 20110119, end: 20110124
  30. FALESTACK [Concomitant]
     Indication: PROPHYLAXIS
     Dosage: 30 MILLILITER
     Route: 048
     Dates: start: 20110119, end: 20110124
  31. REVLIMID [Suspect]
     Indication: MULTIPLE MYELOMA
     Dosage: 5 MILLIGRAM
     Route: 048
     Dates: start: 20101016, end: 20101021
  32. FENTANYL [Concomitant]
     Indication: MULTIPLE MYELOMA
     Route: 062
  33. CLONAZEPAM [Concomitant]
     Indication: MULTIPLE MYELOMA
     Dosage: .5 MILLIGRAM
     Route: 048
     Dates: start: 20110119, end: 20110124

REACTIONS (19)
  - C-REACTIVE PROTEIN INCREASED [None]
  - PLATELET COUNT DECREASED [None]
  - PSYCHIATRIC SYMPTOM [None]
  - BLOOD CREATINE PHOSPHOKINASE INCREASED [None]
  - BLOOD LACTATE DEHYDROGENASE INCREASED [None]
  - PYREXIA [None]
  - ALTERED STATE OF CONSCIOUSNESS [None]
  - ASPARTATE AMINOTRANSFERASE INCREASED [None]
  - PAIN [None]
  - NEUTROPHIL COUNT DECREASED [None]
  - RHABDOMYOLYSIS [None]
  - ALANINE AMINOTRANSFERASE INCREASED [None]
  - LIP HAEMORRHAGE [None]
  - CYSTITIS NONINFECTIVE [None]
  - OCULAR HYPERAEMIA [None]
  - HYPERTHERMIA [None]
  - HYPERAMYLASAEMIA [None]
  - PYELONEPHRITIS [None]
  - ANURIA [None]
